FAERS Safety Report 4541858-5 (Version None)
Quarter: 2004Q4

REPORT INFORMATION
  Report Type: 
  Country: None (occurrence: None)
  Receive Date: 20041230
  Receipt Date: 20041223
  Transmission Date: 20050328
  Serious: Yes (Hospitalization, Disabling)
  Sender: FDA-Public Use
  Company Number: PHRM2004FR03779

PATIENT
  Sex: Male

DRUGS (1)
  1. LESCOL [Suspect]
     Dosage: 80 MG, QD
     Route: 048
     Dates: start: 20040901, end: 20041120

REACTIONS (4)
  - EPICONDYLITIS [None]
  - MUSCLE RUPTURE [None]
  - TENDON DISORDER [None]
  - TENDON RUPTURE [None]
